FAERS Safety Report 13836863 (Version 1)
Quarter: 2017Q3

REPORT INFORMATION
  Report Type: Spontaneous
  Country: US (occurrence: US)
  Receive Date: 20170804
  Receipt Date: 20170804
  Transmission Date: 20171127
  Serious: No
  Sender: FDA-Public Use
  Company Number: US-ROCHE-1220567

PATIENT
  Age: 85 Year
  Sex: Female

DRUGS (2)
  1. LESCOL [Concomitant]
     Active Substance: FLUVASTATIN SODIUM
  2. BONIVA [Suspect]
     Active Substance: IBANDRONATE SODIUM
     Indication: OSTEOPENIA
     Route: 065

REACTIONS (3)
  - Pain in extremity [Unknown]
  - Arthropathy [Unknown]
  - Myalgia [Unknown]
